FAERS Safety Report 25233028 (Version 1)
Quarter: 2025Q2

REPORT INFORMATION
  Report Type: Spontaneous
  Country: US (occurrence: US)
  Receive Date: 20250424
  Receipt Date: 20250424
  Transmission Date: 20250717
  Serious: Yes (Other)
  Sender: APOTEX
  Company Number: US-APOTEX-2025AP004981

PATIENT
  Age: 43 Year
  Sex: Female

DRUGS (1)
  1. DULOXETINE [Suspect]
     Active Substance: DULOXETINE
     Indication: Neuropathy peripheral
     Route: 065

REACTIONS (2)
  - Urinary retention [Recovered/Resolved]
  - Treatment failure [Unknown]
